FAERS Safety Report 24059780 (Version 1)
Quarter: 2024Q3

REPORT INFORMATION
  Report Type: Spontaneous
  Country: FI (occurrence: FI)
  Receive Date: 20240708
  Receipt Date: 20240708
  Transmission Date: 20241016
  Serious: Yes (Hospitalization)
  Sender: AMGEN
  Company Number: FI-AMGEN-FINSP2024129330

PATIENT
  Age: 66 Year
  Sex: Female

DRUGS (8)
  1. ADALIMUMAB [Suspect]
     Active Substance: ADALIMUMAB\ISOPROPYL ALCOHOL
     Indication: Psoriatic arthropathy
     Dosage: 40 MILLIGRAM, QWK
     Route: 058
     Dates: start: 2022, end: 202310
  2. VAGIFEM [Concomitant]
     Active Substance: ESTRADIOL
     Dosage: 2 IN A WEEK
     Route: 067
     Dates: start: 2014
  3. DIPYRIDAMOLE [Concomitant]
     Active Substance: DIPYRIDAMOLE
     Indication: Anticoagulant therapy
     Dosage: 2 MORNING 1 EVENING
     Route: 048
     Dates: start: 2005
  4. ALLOPURINOL [Concomitant]
     Active Substance: ALLOPURINOL
     Indication: Gout
     Dosage: 400 MILLIGRAM, QD (300 MG MORNING 100 MG EVENING)
     Route: 048
  5. BIMZELX [Concomitant]
     Active Substance: BIMEKIZUMAB-BKZX
     Indication: Psoriatic arthropathy
     Dosage: 160 MILLIGRAM, Q4WK (1 TIME EVERY 4 WEEKS)
     Route: 058
     Dates: end: 202401
  6. LEVOTHYROXINE [Concomitant]
     Active Substance: LEVOTHYROXINE\LEVOTHYROXINE SODIUM
     Indication: Hypothyroidism
     Dosage: 100 MICROGRAM, QD (1 MORNING)
     Route: 048
  7. SIMVASTATIN [Concomitant]
     Active Substance: SIMVASTATIN
     Indication: Blood cholesterol abnormal
     Dosage: 40 MILLIGRAM, QD (1 EVENING)
     Route: 048
     Dates: start: 2005
  8. ATACAND [Concomitant]
     Active Substance: CANDESARTAN CILEXETIL
     Indication: Blood pressure abnormal
     Dosage: 16 MILLIGRAM, QD (1 MORNING)
     Route: 048
     Dates: start: 2005

REACTIONS (5)
  - Fatigue [Not Recovered/Not Resolved]
  - Neoplasm malignant [Not Recovered/Not Resolved]
  - Pneumonia [Not Recovered/Not Resolved]
  - Malaise [Not Recovered/Not Resolved]
  - Off label use [Unknown]

NARRATIVE: CASE EVENT DATE: 20220101
